FAERS Safety Report 22532629 (Version 1)
Quarter: 2023Q2

REPORT INFORMATION
  Report Type: Spontaneous
  Country: CN (occurrence: CN)
  Receive Date: 20230607
  Receipt Date: 20230607
  Transmission Date: 20230721
  Serious: Yes (Death, Other)
  Sender: FDA-Public Use
  Company Number: CN-002147023-NVSC2020CN111719

PATIENT
  Sex: Female

DRUGS (1)
  1. ACLASTA [Suspect]
     Active Substance: ZOLEDRONIC ACID
     Indication: Osteoporosis
     Dosage: 1 DF, ONCE/SINGLE
     Route: 041
     Dates: start: 20200415

REACTIONS (3)
  - Haemoptysis [Fatal]
  - Asphyxia [Fatal]
  - Vomiting [Fatal]

NARRATIVE: CASE EVENT DATE: 20200415
